FAERS Safety Report 10658328 (Version 3)
Quarter: 2015Q1

REPORT INFORMATION
  Report Type: Spontaneous
  Country: US (occurrence: US)
  Receive Date: 20141217
  Receipt Date: 20150210
  Transmission Date: 20150720
  Serious: No
  Sender: FDA-Public Use
  Company Number: US-009507513-1412USA007490

PATIENT
  Age: 74 Year
  Sex: Female
  Weight: 58.96 kg

DRUGS (4)
  1. COMBIVENT [Concomitant]
     Active Substance: ALBUTEROL SULFATE\IPRATROPIUM BROMIDE
     Dosage: UNK
  2. PREDNISONE. [Concomitant]
     Active Substance: PREDNISONE
     Dosage: UNK
  3. CODEINE PHOSPHATE (+) PROMETHAZINE HYDROCHLORIDE [Concomitant]
     Dosage: UNK
  4. DULERA [Suspect]
     Active Substance: FORMOTEROL FUMARATE DIHYDRATE\MOMETASONE FUROATE
     Indication: COUGH
     Dosage: TWO PUFFS DAILY
     Route: 048
     Dates: start: 20141211

REACTIONS (8)
  - Dyspnoea [Recovered/Resolved]
  - Incorrect dose administered [Unknown]
  - Drug administration error [Unknown]
  - Drug ineffective [Recovered/Resolved]
  - Drug dose omission [Unknown]
  - Product quality issue [Unknown]
  - Underdose [Unknown]
  - Incorrect route of drug administration [Unknown]

NARRATIVE: CASE EVENT DATE: 201412
